FAERS Safety Report 4840230-8 (Version None)
Quarter: 2005Q4

REPORT INFORMATION
  Report Type: 
  Country: None (occurrence: None)
  Receive Date: 20051125
  Receipt Date: 20051114
  Transmission Date: 20060501
  Serious: Yes (Hospitalization)
  Sender: FDA-Public Use
  Company Number: PHEH2005US10534

PATIENT
  Age: 73 Year
  Sex: Male
  Weight: 74.8435 kg

DRUGS (2)
  1. VISUDYNE [Suspect]
     Dosage: 11.4 MG DAILY IV
     Route: 042
     Dates: start: 20050519, end: 20050519
  2. COUMADIN [Concomitant]

REACTIONS (2)
  - BACK PAIN [None]
  - THROMBOSIS [None]
